FAERS Safety Report 12133939 (Version 1)
Quarter: 2016Q1

REPORT INFORMATION
  Report Type: Spontaneous
  Country: US (occurrence: US)
  Receive Date: 20160301
  Receipt Date: 20160301
  Transmission Date: 20160526
  Serious: No
  Sender: FDA-Public Use
  Company Number: US-INSYS THERAPEUTICS, INC-INS201504-000113

PATIENT
  Age: 55 Year
  Sex: Female
  Weight: 68.03 kg

DRUGS (8)
  1. ACTIQ [Concomitant]
     Active Substance: FENTANYL CITRATE
     Indication: GASTROENTERITIS RADIATION
  2. AZOR [Concomitant]
     Active Substance: AMLODIPINE BESYLATE\OLMESARTAN MEDOXOMIL
     Indication: BLOOD PRESSURE MEASUREMENT
  3. ELAVIL [Concomitant]
     Active Substance: AMITRIPTYLINE HYDROCHLORIDE
     Indication: AFFECTIVE DISORDER
  4. SUBSYS [Suspect]
     Active Substance: FENTANYL
     Indication: GASTROENTERITIS RADIATION
     Route: 060
     Dates: start: 20150326
  5. ACTIQ [Concomitant]
     Active Substance: FENTANYL CITRATE
     Indication: OVARIAN CANCER
  6. OXYCODONE [Concomitant]
     Active Substance: OXYCODONE
  7. XANAX [Concomitant]
     Active Substance: ALPRAZOLAM
     Indication: INSOMNIA
  8. ELAVIL [Concomitant]
     Active Substance: AMITRIPTYLINE HYDROCHLORIDE
     Indication: AFFECTIVE DISORDER

REACTIONS (3)
  - Drug administration error [Unknown]
  - Application site irritation [Not Recovered/Not Resolved]
  - Off label use [Unknown]

NARRATIVE: CASE EVENT DATE: 20150326
